FAERS Safety Report 12424111 (Version 1)
Quarter: 2016Q2

REPORT INFORMATION
  Report Type: Spontaneous
  Country: US (occurrence: None)
  Receive Date: 20160531
  Receipt Date: 20160531
  Transmission Date: 20160815
  Serious: No
  Sender: FDA-Public Use
  Company Number: None

PATIENT

DRUGS (1)
  1. LAMICTAL XR [Suspect]
     Active Substance: LAMOTRIGINE
     Indication: EPILEPSY
     Route: 048
     Dates: start: 2010

REACTIONS (3)
  - Therapeutic response changed [None]
  - Status epilepticus [None]
  - Product substitution issue [None]
